FAERS Safety Report 17994303 (Version 1)
Quarter: 2020Q3

REPORT INFORMATION
  Report Type: Spontaneous
  Country: US (occurrence: US)
  Receive Date: 20200708
  Receipt Date: 20200708
  Transmission Date: 20201103
  Serious: Yes (Hospitalization, Other)
  Sender: FDA-Public Use
  Company Number: None

PATIENT
  Age: 50 Year
  Sex: Male
  Weight: 57.6 kg

DRUGS (13)
  1. MULTIPLE VITAMIN [Concomitant]
     Active Substance: VITAMINS
  2. FISH OIL SUPPLEMENT [Concomitant]
     Active Substance: FISH OIL
  3. GARLIC SUPPLEMENT [Concomitant]
  4. MS CONTIN [Concomitant]
     Active Substance: MORPHINE SULFATE
  5. MORPHINE SULFATE IMMEDIATE RELEASE [Concomitant]
     Active Substance: MORPHINE SULFATE
  6. BIOTIN [Concomitant]
     Active Substance: BIOTIN
  7. SPIRIVA RESPIMAT [Suspect]
     Active Substance: TIOTROPIUM BROMIDE
     Indication: CHRONIC OBSTRUCTIVE PULMONARY DISEASE
     Dosage: ?          QUANTITY:1 PUFF(S);?
     Route: 055
     Dates: start: 20200512, end: 20200613
  8. CLONAZEPAM. [Concomitant]
     Active Substance: CLONAZEPAM
  9. TIZANIDINE. [Concomitant]
     Active Substance: TIZANIDINE
  10. ESTRADIOL?NORETHINDRONE ACETATE [Concomitant]
  11. PROAIR INHALER [Concomitant]
     Active Substance: ALBUTEROL SULFATE
  12. VITAMIN C [Concomitant]
     Active Substance: ASCORBIC ACID
  13. PEPCID A/C [Concomitant]

REACTIONS (11)
  - Hypoaesthesia [None]
  - Syncope [None]
  - Palpitations [None]
  - Urinary retention [None]
  - Dizziness [None]
  - Chest pain [None]
  - Insomnia [None]
  - Sensory disturbance [None]
  - Weight decreased [None]
  - Urinary tract infection [None]
  - Anxiety [None]

NARRATIVE: CASE EVENT DATE: 20200613
